FAERS Safety Report 16935221 (Version 2)
Quarter: 2019Q4

REPORT INFORMATION
  Report Type: Spontaneous
  Country: US (occurrence: US)
  Receive Date: 20191018
  Receipt Date: 20191021
  Transmission Date: 20200122
  Serious: Yes (Death)
  Sender: FDA-Public Use
  Company Number: US-PFIZER INC-2019446722

PATIENT
  Age: 31 Year
  Sex: Male

DRUGS (3)
  1. BLEOMYCIN SULFATE [Suspect]
     Active Substance: BLEOMYCIN SULFATE
     Indication: TESTICULAR EMBRYONAL CARCINOMA
     Dosage: 15 UNITS/M2 (30 UNITS IV, DAYS 1 AND 15
     Route: 042
  2. VINBLASTINE [Suspect]
     Active Substance: VINBLASTINE
     Indication: TESTICULAR EMBRYONAL CARCINOMA
     Dosage: 12 MG/M2, CYCLIC (DAY 1)
  3. CIS-PLATINUM [Suspect]
     Active Substance: CISPLATIN
     Indication: TESTICULAR EMBRYONAL CARCINOMA
     Dosage: 15 MG/M2, CYCLIC (DAYS 1 TO 5)
     Route: 042

REACTIONS (1)
  - Arterial fibrosis [Fatal]
